FAERS Safety Report 5815269-6 (Version None)
Quarter: 2008Q3

REPORT INFORMATION
  Report Type: 
  Country: None (occurrence: None)
  Receive Date: 20080718
  Receipt Date: 20080703
  Transmission Date: 20090109
  Serious: Yes (Hospitalization)
  Sender: FDA-Public Use
  Company Number: GB-BOEHRINGER INGELHEIM GMBH, GERMANY-2008-UK-01316UK

PATIENT

DRUGS (2)
  1. TIOTROPIUM (00015/0190/A) [Suspect]
  2. ALBUTEROL [Concomitant]

REACTIONS (2)
  - DYSPNOEA [None]
  - NASOPHARYNGITIS [None]
